FAERS Safety Report 17082873 (Version 2)
Quarter: 2019Q4

REPORT INFORMATION
  Report Type: Report from Study
  Country: FR (occurrence: FR)
  Receive Date: 20191127
  Receipt Date: 20191218
  Transmission Date: 20200122
  Serious: Yes (Death, Hospitalization, Other)
  Sender: FDA-Public Use
  Company Number: FR-MYLANLABS-2019M1116342

PATIENT
  Age: 75 Year
  Sex: Male
  Weight: 72 kg

DRUGS (7)
  1. PANTOPRAZOLE [Suspect]
     Active Substance: PANTOPRAZOLE
     Indication: PRODUCT USED FOR UNKNOWN INDICATION
     Dosage: 20 MG, UNK
     Route: 048
     Dates: start: 20180908, end: 20181101
  2. ESIDREX [Suspect]
     Active Substance: HYDROCHLOROTHIAZIDE
     Indication: BLOOD PRESSURE MANAGEMENT
     Dosage: 0.5 MG, UNK
     Route: 048
     Dates: start: 20180908, end: 20181002
  3. MERONEM [Suspect]
     Active Substance: MEROPENEM
     Indication: INFECTION
     Dosage: 3 MG, UNK
     Route: 042
     Dates: start: 20180908, end: 20180930
  4. ATENOLOL. [Suspect]
     Active Substance: ATENOLOL
     Indication: SEPTIC SHOCK
     Dosage: 60 MG, UNK
     Dates: start: 20180908, end: 20181002
  5. PERINDOPRIL [Suspect]
     Active Substance: PERINDOPRIL
     Indication: SEPTIC SHOCK
     Dosage: 4 MG, UNK
     Route: 048
     Dates: start: 20180908, end: 20181002
  6. AMLOR [Concomitant]
     Active Substance: AMLODIPINE BESYLATE
     Indication: SEPTIC SHOCK
     Dosage: 5 MG, UNK
     Route: 048
     Dates: start: 20180908, end: 20181002
  7. VYXEOS [Suspect]
     Active Substance: CYTARABINE\DAUNORUBICIN
     Indication: ACUTE MYELOID LEUKAEMIA
     Dosage: 60 MG/M2, UNK
     Route: 042
     Dates: start: 20180706, end: 20180710

REACTIONS (6)
  - Septic shock [Fatal]
  - Pseudomonas infection [Fatal]
  - Erysipelas [Recovered/Resolved]
  - Multiple organ dysfunction syndrome [Fatal]
  - Dermo-hypodermitis [Recovered/Resolved]
  - Stenotrophomonas infection [Fatal]

NARRATIVE: CASE EVENT DATE: 20180930
